FAERS Safety Report 4714177-1 (Version None)
Quarter: 2005Q3

REPORT INFORMATION
  Report Type: 
  Country: None (occurrence: None)
  Receive Date: 20050713
  Receipt Date: 20050713
  Transmission Date: 20060218
  Serious: Yes (Disabling, Other)
  Sender: FDA-Public Use
  Company Number: None

PATIENT
  Age: 47 Year
  Sex: Male
  Weight: 97.5234 kg

DRUGS (1)
  1. PAXIL [Suspect]
     Indication: DEPRESSION
     Dosage: 10MG 2X ORAL
     Route: 048
     Dates: start: 20030301, end: 20040401

REACTIONS (9)
  - AGORAPHOBIA [None]
  - DRUG INEFFECTIVE [None]
  - DYSSTASIA [None]
  - HEADACHE [None]
  - HYPERHIDROSIS [None]
  - MALAISE [None]
  - MOOD SWINGS [None]
  - VERTIGO [None]
  - VOMITING [None]
